FAERS Safety Report 15609315 (Version 2)
Quarter: 2018Q4

REPORT INFORMATION
  Report Type: Spontaneous
  Country: BR (occurrence: BR)
  Receive Date: 20181112
  Receipt Date: 20181128
  Transmission Date: 20190205
  Serious: Yes (Death, Disabling)
  Sender: FDA-Public Use
  Company Number: BR-BIOMARINAP-BR-2018-120748

PATIENT
  Age: 26 Year
  Sex: Male

DRUGS (1)
  1. VIMIZIM [Suspect]
     Active Substance: ELOSULFASE ALFA
     Indication: MUCOPOLYSACCHARIDOSIS IV
     Dosage: UNK, QW
     Dates: start: 2014

REACTIONS (8)
  - Quadriplegia [Unknown]
  - Deafness [Unknown]
  - Vital functions abnormal [Unknown]
  - Blindness [Unknown]
  - Cardiac arrest [Fatal]
  - Muscle spasms [Unknown]
  - Oxygen saturation decreased [Unknown]
  - Tachycardia [Unknown]

NARRATIVE: CASE EVENT DATE: 20181108
